FAERS Safety Report 14560452 (Version 1)
Quarter: 2018Q1

REPORT INFORMATION
  Report Type: Report from Study
  Country: None (occurrence: RO)
  Receive Date: 20180222
  Receipt Date: 20180222
  Transmission Date: 20180509
  Serious: Yes (Death, Hospitalization)
  Sender: FDA-Public Use
  Company Number: RO-ABBVIE-18K-135-2264906-00

PATIENT
  Age: 69 Year
  Sex: Male

DRUGS (4)
  1. EGILOK [Concomitant]
     Active Substance: METOPROLOL TARTRATE
     Indication: ISCHAEMIC CARDIOMYOPATHY
     Route: 048
     Dates: start: 20140117, end: 20180219
  2. DUODOPA [Suspect]
     Active Substance: CARBIDOPA\LEVODOPA
     Indication: PARKINSON^S DISEASE
     Dosage: MD=9.00??CD=4.20??ED=3.00
     Route: 050
     Dates: start: 20140418, end: 20180219
  3. VENLAFAXIN [Concomitant]
     Active Substance: VENLAFAXINE HYDROCHLORIDE
     Indication: DEPRESSION
     Route: 048
     Dates: start: 20140117, end: 20180219
  4. DILATAN [Concomitant]
     Indication: ISCHAEMIC CARDIOMYOPATHY
     Route: 048
     Dates: start: 20140117, end: 20180219

REACTIONS (4)
  - Bronchopneumopathy [Fatal]
  - Cardio-respiratory arrest [Fatal]
  - Pulmonary sepsis [Fatal]
  - Pyrexia [Fatal]

NARRATIVE: CASE EVENT DATE: 20180216
